FAERS Safety Report 19172587 (Version 3)
Quarter: 2021Q2

REPORT INFORMATION
  Report Type: Spontaneous
  Country: US (occurrence: US)
  Receive Date: 20210423
  Receipt Date: 20210624
  Transmission Date: 20210717
  Serious: Yes (Other)
  Sender: FDA-Public Use
  Company Number: US-SA-2021SA135474

PATIENT
  Age: 92 Year
  Sex: Female

DRUGS (2)
  1. DUPIXENT [Suspect]
     Active Substance: DUPILUMAB
     Indication: DERMATITIS ALLERGIC
     Dosage: 300 MG, QOW
     Route: 058
     Dates: start: 202008
  2. CIPROFLOXACIN. [Suspect]
     Active Substance: CIPROFLOXACIN
     Indication: URINARY TRACT INFECTION
     Dosage: UNK
     Dates: start: 202106

REACTIONS (8)
  - Asthenia [Unknown]
  - Abdominal pain [Unknown]
  - Urinary tract infection [Unknown]
  - Blister [Unknown]
  - Pruritus [Unknown]
  - Product use in unapproved indication [Unknown]
  - Pruritus [Unknown]
  - Pallor [Unknown]

NARRATIVE: CASE EVENT DATE: 202008
